FAERS Safety Report 18530590 (Version 2)
Quarter: 2020Q4

REPORT INFORMATION
  Report Type: Report from Study
  Country: UG (occurrence: UG)
  Receive Date: 20201121
  Receipt Date: 20201127
  Transmission Date: 20210114
  Serious: Yes (Congenital Anomaly, Other)
  Sender: FDA-Public Use
  Company Number: UG-AUROBINDO-AUR-APL-2020-058090

PATIENT
  Age: 22 Day
  Sex: Male
  Weight: 1.1 kg

DRUGS (2)
  1. CABOTEGRAVIR [Concomitant]
     Active Substance: CABOTEGRAVIR
     Indication: PRODUCT USED FOR UNKNOWN INDICATION
     Dosage: UNK
     Route: 064
  2. EMTRICITABINE AND TENOFOVIR [Suspect]
     Active Substance: EMTRICITABINE\TENOFOVIR
     Indication: PRODUCT USED FOR UNKNOWN INDICATION
     Dosage: UNK
     Route: 064
     Dates: start: 20191127

REACTIONS (2)
  - Foetal exposure during pregnancy [Unknown]
  - Respiratory distress [Unknown]
